FAERS Safety Report 6390931-8 (Version None)
Quarter: 2009Q4

REPORT INFORMATION
  Report Type: 
  Country: None (occurrence: None)
  Receive Date: 20091003
  Receipt Date: 20090921
  Transmission Date: 20100525
  Serious: Yes (Other)
  Sender: FDA-Public Use
  Company Number: 2009AL004212

PATIENT
  Age: 60 Year
  Sex: Male

DRUGS (4)
  1. BACLOFEN [Suspect]
     Indication: MUSCLE SPASMS
     Dosage: 15 MG; TID; UNKNOWN
     Dates: start: 20080101
  2. GLYCOPYPRONIUM [Concomitant]
  3. CARBAMAZEPINE [Concomitant]
  4. TIZANIDINE HCL [Concomitant]

REACTIONS (2)
  - DIABETES MELLITUS [None]
  - GLYCOSYLATED HAEMOGLOBIN INCREASED [None]
